FAERS Safety Report 25228499 (Version 2)
Quarter: 2025Q2

REPORT INFORMATION
  Report Type: Spontaneous
  Country: US (occurrence: US)
  Receive Date: 20250423
  Receipt Date: 20250508
  Transmission Date: 20250717
  Serious: Yes (Death, Life-Threatening, Hospitalization, Other)
  Sender: DR REDDYS
  Company Number: None

PATIENT
  Age: 8 Decade
  Sex: Female

DRUGS (13)
  1. DOXORUBICIN [Suspect]
     Active Substance: DOXORUBICIN
     Indication: Post transplant lymphoproliferative disorder
  2. TACROLIMUS [Suspect]
     Active Substance: TACROLIMUS
     Indication: Immunosuppressant drug therapy
  3. CYCLOPHOSPHAMIDE [Suspect]
     Active Substance: CYCLOPHOSPHAMIDE
     Indication: Post transplant lymphoproliferative disorder
  4. CELLCEPT [Suspect]
     Active Substance: MYCOPHENOLATE MOFETIL
     Indication: Immunosuppressant drug therapy
  5. PREDNISONE [Suspect]
     Active Substance: PREDNISONE
     Indication: Immunosuppressant drug therapy
  6. PREDNISONE [Suspect]
     Active Substance: PREDNISONE
     Indication: Post transplant lymphoproliferative disorder
  7. VINCRISTINE [Concomitant]
     Active Substance: VINCRISTINE
     Indication: Post transplant lymphoproliferative disorder
  8. VASOPRESSIN [Concomitant]
     Active Substance: VASOPRESSIN
     Indication: Distributive shock
  9. RITUXIMAB [Concomitant]
     Active Substance: RITUXIMAB
     Indication: Post transplant lymphoproliferative disorder
  10. NOREPINEPHRINE [Concomitant]
     Active Substance: NOREPINEPHRINE
     Indication: Distributive shock
  11. VANCOMYCIN [Concomitant]
     Active Substance: VANCOMYCIN
     Indication: Evidence based treatment
  12. PIPERACILLIN SODIUM\TAZOBACTAM SODIUM [Concomitant]
     Active Substance: PIPERACILLIN SODIUM\TAZOBACTAM SODIUM
     Indication: Evidence based treatment
  13. AMIODARONE [Concomitant]
     Active Substance: AMIODARONE
     Indication: Atrial fibrillation

REACTIONS (11)
  - Post transplant lymphoproliferative disorder [Fatal]
  - Drug ineffective for unapproved indication [Fatal]
  - Diffuse large B-cell lymphoma [Fatal]
  - Distributive shock [Fatal]
  - Epstein-Barr virus associated lymphoma [Fatal]
  - Large intestinal obstruction [Unknown]
  - Atrial fibrillation [Unknown]
  - Cytokine storm [Unknown]
  - Immunosuppressant drug level increased [Unknown]
  - Disease progression [Unknown]
  - Acute respiratory distress syndrome [Unknown]
